FAERS Safety Report 21714750 (Version 1)
Quarter: 2022Q4

REPORT INFORMATION
  Report Type: Spontaneous
  Country: US (occurrence: None)
  Receive Date: 20221211
  Receipt Date: 20221211
  Transmission Date: 20230113
  Serious: Yes (Other)
  Sender: FDA-Public Use
  Company Number: None

PATIENT
  Age: 77 Year
  Sex: Female
  Weight: 54.9 kg

DRUGS (1)
  1. EMSAM [Suspect]
     Active Substance: SELEGILINE
     Indication: Bipolar disorder
     Dosage: OTHER QUANTITY : 1 PATCH(ES);?FREQUENCY : DAILY;?
     Route: 062

REACTIONS (2)
  - Adrenergic syndrome [None]
  - Confusional state [None]

NARRATIVE: CASE EVENT DATE: 20221101
